FAERS Safety Report 8978185 (Version 1)
Quarter: 2012Q4

REPORT INFORMATION
  Report Type: 
  Country: JP (occurrence: JP)
  Receive Date: 20121221
  Receipt Date: 20121221
  Transmission Date: 20130627
  Serious: Yes (Life-Threatening, Other)
  Sender: FDA-Public Use
  Company Number: JP-AMGEN-JPNSP2012082030

PATIENT
  Age: 49 Year
  Sex: Female
  Weight: 55 kg

DRUGS (9)
  1. ENBREL [Suspect]
     Indication: RHEUMATOID ARTHRITIS
     Dosage: UNK
     Route: 058
     Dates: start: 20061212, end: 20070109
  2. ENBREL [Suspect]
     Dosage: UNK
     Route: 058
     Dates: start: 20070130, end: 20070303
  3. METHOTREXATE [Suspect]
     Indication: RHEUMATOID ARTHRITIS
     Dosage: 12.5 mg, weekly
     Route: 048
     Dates: start: 20080308, end: 20080521
  4. METHOTREXATE [Suspect]
     Dosage: 13.8 mg, weekly
     Route: 048
     Dates: start: 20080522, end: 20080813
  5. METHOTREXATE [Suspect]
     Dosage: 15.0 mg, weekly
     Route: 048
     Dates: start: 20080814, end: 20090706
  6. RHEUMATREX                         /00113801/ [Suspect]
     Indication: RHEUMATOID ARTHRITIS
     Dosage: 6.0 mg, weekly
     Route: 048
     Dates: start: 20060203, end: 20060204
  7. RHEUMATREX                         /00113801/ [Suspect]
     Dosage: 8.0 mg, weekly
     Route: 048
     Dates: start: 20060210, end: 20070823
  8. RHEUMATREX                         /00113801/ [Suspect]
     Dosage: 10.0 mg, weekly
     Route: 048
     Dates: start: 20070824, end: 20080307
  9. REMICADE [Concomitant]
     Dosage: total of 100mg
     Route: 042
     Dates: start: 20070806, end: 20070807

REACTIONS (3)
  - Diffuse large B-cell lymphoma [Recovered/Resolved]
  - Cervical myelopathy [Unknown]
  - Cryptococcosis [Unknown]
